FAERS Safety Report 7322547-0 (Version None)
Quarter: 2011Q1

REPORT INFORMATION
  Report Type: 
  Country: None (occurrence: None)
  Receive Date: 20110301
  Receipt Date: 20110215
  Transmission Date: 20110831
  Serious: Yes (Other)
  Sender: FDA-Public Use
  Company Number: US-RANBAXY-2011US-41100

PATIENT
  Age: 21 Year
  Sex: Female

DRUGS (2)
  1. MINOCYCLINE HYDROCHLORIDE [Suspect]
     Indication: ACNE
     Dosage: 75 MG, UNK
     Route: 065
  2. SOLODYN [Suspect]
     Indication: ACNE
     Dosage: 90 MG, UNK
     Route: 065

REACTIONS (2)
  - LIVER INJURY [None]
  - HEPATIC FAILURE [None]
